FAERS Safety Report 8267358-7 (Version None)
Quarter: 2012Q2

REPORT INFORMATION
  Report Type: 
  Country: None (occurrence: None)
  Receive Date: 20120409
  Receipt Date: 20120327
  Transmission Date: 20120825
  Serious: Yes (Hospitalization, Other)
  Sender: FDA-Public Use
  Company Number: PHHY2012BR027523

PATIENT
  Sex: Female

DRUGS (2)
  1. METHYLDOPA [Suspect]
     Indication: HYPERTENSION
     Dosage: 500 MG, QD
  2. DIOVAN HCT [Suspect]
     Indication: HYPERTENSION
     Dosage: 1 DF, QD

REACTIONS (3)
  - LOW BIRTH WEIGHT BABY [None]
  - PREMATURE BABY [None]
  - FOETAL EXPOSURE DURING PREGNANCY [None]
